FAERS Safety Report 14455869 (Version 11)
Quarter: 2021Q4

REPORT INFORMATION
  Report Type: Spontaneous
  Country: PL (occurrence: PL)
  Receive Date: 20180130
  Receipt Date: 20211019
  Transmission Date: 20220303
  Serious: Yes (Hospitalization, Other)
  Sender: FDA-Public Use
  Company Number: CASE ID: PL-BRISTOL-MYERS SQUIBB COMPANY-BMS-2017-116300

PATIENT
  Age: 35 Year
  Sex: Male

DRUGS (24)
  1. ATAZANAVIR SULFATE [Interacting]
     Active Substance: ATAZANAVIR SULFATE
     Indication: HIV infection
     Dosage: UNK
     Route: 065
  2. ATAZANAVIR SULFATE [Interacting]
     Active Substance: ATAZANAVIR SULFATE
     Indication: Retroviral infection
  3. LAMIVUDINE [Interacting]
     Active Substance: LAMIVUDINE
     Indication: HIV infection
     Dosage: UNK
     Route: 065
  4. LAMIVUDINE [Interacting]
     Active Substance: LAMIVUDINE
     Indication: Antiretroviral therapy
     Dosage: UNK
     Route: 065
  5. ABACAVIR [Interacting]
     Active Substance: ABACAVIR
     Indication: HIV infection
     Dosage: UNK
     Route: 065
  6. ABACAVIR [Interacting]
     Active Substance: ABACAVIR
     Indication: Antiretroviral therapy
     Dosage: UNK
     Route: 065
  7. FENOFIBRATE [Interacting]
     Active Substance: FENOFIBRATE
     Indication: Hypertriglyceridaemia
     Dosage: 267 MG, UNK
     Route: 065
  8. VIREAD [Interacting]
     Active Substance: TENOFOVIR DISOPROXIL FUMARATE
     Indication: HIV infection
     Dosage: UNK
     Route: 065
  9. VIREAD [Interacting]
     Active Substance: TENOFOVIR DISOPROXIL FUMARATE
     Indication: Antiretroviral therapy
  10. OMEGA-3-ACID ETHYL ESTERS [Interacting]
     Active Substance: OMEGA-3-ACID ETHYL ESTERS
     Indication: Hypertriglyceridaemia
     Dosage: UNK
     Route: 065
  11. RITONAVIR [Interacting]
     Active Substance: RITONAVIR
     Indication: HIV infection
     Dosage: UNK
     Route: 065
  12. RITONAVIR [Interacting]
     Active Substance: RITONAVIR
     Indication: Antiretroviral therapy
     Dosage: UNK
     Route: 065
  13. EMTRIVA [Interacting]
     Active Substance: EMTRICITABINE
     Indication: Antiretroviral therapy
     Dosage: UNK
     Route: 065
  14. EMTRIVA [Interacting]
     Active Substance: EMTRICITABINE
     Indication: HIV infection
  15. ATORVASTATIN [Interacting]
     Active Substance: ATORVASTATIN
     Indication: Hypertriglyceridaemia
     Dosage: UNK
     Route: 065
  16. ATORVASTATIN [Interacting]
     Active Substance: ATORVASTATIN
     Indication: HIV infection
     Dosage: UNK
     Route: 065
  17. DARUNAVIR [Interacting]
     Active Substance: DARUNAVIR
     Indication: Antiretroviral therapy
     Dosage: UNK
     Route: 065
  18. DARUNAVIR [Interacting]
     Active Substance: DARUNAVIR
     Indication: HIV infection
     Dosage: UNK
     Route: 065
  19. ICOSAPENT [Interacting]
     Active Substance: ICOSAPENT
     Indication: Hypertriglyceridaemia
     Dosage: UNK
     Route: 065
  20. ICOSAPENT [Interacting]
     Active Substance: ICOSAPENT
     Dosage: UNK
     Route: 065
  21. ICOSAPENT [Interacting]
     Active Substance: ICOSAPENT
     Indication: Hypertriglyceridaemia
     Dosage: UNK
     Route: 065
  22. DOCONEXENT\ICOSAPENT\OMEGA-3 FATTY ACIDS [Interacting]
     Active Substance: DOCONEXENT\ICOSAPENT\OMEGA-3 FATTY ACIDS
     Indication: Hypertriglyceridaemia
     Dosage: UNK
     Route: 065
  23. TENOFOVIR [Concomitant]
     Active Substance: TENOFOVIR
     Indication: Antiretroviral therapy
     Dosage: UNK
     Route: 065
  24. ROSUVASTATIN [Concomitant]
     Active Substance: ROSUVASTATIN
     Indication: Hypertriglyceridaemia
     Dosage: 40 MG, UNK
     Route: 065

REACTIONS (4)
  - Acute myocardial infarction [Recovered/Resolved]
  - Coronary artery disease [Recovered/Resolved]
  - Drug interaction [Unknown]
  - Off label use [Unknown]

NARRATIVE: CASE EVENT DATE: 20120822
